FAERS Safety Report 21539447 (Version 2)
Quarter: 2022Q4

REPORT INFORMATION
  Report Type: Report from Study
  Country: AR (occurrence: AR)
  Receive Date: 20221102
  Receipt Date: 20221108
  Transmission Date: 20230113
  Serious: Yes (Other)
  Sender: FDA-Public Use
  Company Number: AR-ABBVIE-4184184

PATIENT
  Age: 51 Year
  Sex: Male

DRUGS (1)
  1. HUMIRA [Suspect]
     Active Substance: ADALIMUMAB
     Indication: Psoriatic arthropathy
     Dosage: STRENGTH 40 MILLIGRAM
     Route: 058
     Dates: start: 20210828

REACTIONS (2)
  - Mobility decreased [Recovered/Resolved]
  - Arterial thrombosis [Unknown]

NARRATIVE: CASE EVENT DATE: 20221019
